FAERS Safety Report 13425152 (Version 2)
Quarter: 2017Q2

REPORT INFORMATION
  Report Type: Spontaneous
  Country: AU (occurrence: AU)
  Receive Date: 20170411
  Receipt Date: 20170428
  Transmission Date: 20170830
  Serious: Yes (Hospitalization, Disabling, Other)
  Sender: FDA-Public Use
  Company Number: AU-AMGEN-AUSSP2017053448

PATIENT
  Age: 81 Year
  Sex: Female
  Weight: 50 kg

DRUGS (15)
  1. ASPIRIN. [Concomitant]
     Active Substance: ASPIRIN
     Dosage: 100 MG, QD
  2. LEXAM [Concomitant]
     Dosage: 20 MG, UNK
  3. METFORMIN [Concomitant]
     Active Substance: METFORMIN HYDROCHLORIDE
     Dosage: 1 G, QD
  4. PROLIA [Suspect]
     Active Substance: DENOSUMAB
     Indication: OSTEOPOROSIS POSTMENOPAUSAL
     Dosage: 60 MG/ML, Q6MO
     Route: 058
     Dates: start: 20141104
  5. FLUVAX [Concomitant]
     Active Substance: INFLUENZA VIRUS VACCINE
  6. ASMOL [Concomitant]
     Active Substance: ALBUTEROL SULFATE
     Dosage: 100 MCG, AS NECESSARY
  7. DILTIAZEM. [Concomitant]
     Active Substance: DILTIAZEM
     Dosage: 60 MG, BID
  8. NEXIUM [Concomitant]
     Active Substance: ESOMEPRAZOLE MAGNESIUM
     Dosage: 10 MG, QD
  9. SERETIDE [Concomitant]
     Active Substance: FLUTICASONE PROPIONATE\SALMETEROL XINAFOATE
     Dosage: 2 DF(250MCG, 50MCG), BID
  10. XALATAN [Concomitant]
     Active Substance: LATANOPROST
     Dosage: 50 MCG/ML, UNK
  11. DIGOXIN. [Concomitant]
     Active Substance: DIGOXIN
     Dosage: 62.5 MCG, PC
  12. FRUSEMIDE [Concomitant]
     Active Substance: FUROSEMIDE
     Dosage: 40 MG, UNK
  13. MAGNESIUM ASPARTATE [Concomitant]
     Active Substance: MAGNESIUM ASPARTATE
     Dosage: 2 DF (500 MG), BID
  14. PRAMIN [Concomitant]
     Dosage: 10 MG, TID
  15. PREDNISOLONE. [Concomitant]
     Active Substance: PREDNISOLONE
     Dosage: 5 MG, BID

REACTIONS (7)
  - Hip fracture [Recovering/Resolving]
  - Mitral valve incompetence [Unknown]
  - Bursitis [Unknown]
  - Fall [Recovering/Resolving]
  - Living in residential institution [Unknown]
  - Barrett^s oesophagus [Unknown]
  - Anaemia [Unknown]

NARRATIVE: CASE EVENT DATE: 20150222
